FAERS Safety Report 18772923 (Version 2)
Quarter: 2021Q1

REPORT INFORMATION
  Report Type: Spontaneous
  Country: US (occurrence: US)
  Receive Date: 20210122
  Receipt Date: 20210205
  Transmission Date: 20210419
  Serious: Yes (Death, Hospitalization, Other)
  Sender: FDA-Public Use
  Company Number: US-B.I. PHARMACEUTICALS,INC./RIDGEFIELD-2021-BI-077605

PATIENT
  Age: 71 Year
  Sex: Male

DRUGS (1)
  1. STIOLTO RESPIMAT [Suspect]
     Active Substance: OLODATEROL HYDROCHLORIDE\TIOTROPIUM BROMIDE MONOHYDRATE
     Indication: CHRONIC OBSTRUCTIVE PULMONARY DISEASE
     Dosage: 2 PUFFS DAILY
     Dates: start: 2017

REACTIONS (7)
  - Hip fracture [Unknown]
  - Fall [Recovered/Resolved]
  - Chronic obstructive pulmonary disease [Fatal]
  - Asthenia [Fatal]
  - COVID-19 [Fatal]
  - Physical deconditioning [Fatal]
  - Femur fracture [Unknown]

NARRATIVE: CASE EVENT DATE: 20201019
